FAERS Safety Report 7505342-9 (Version None)
Quarter: 2011Q2

REPORT INFORMATION
  Report Type: 
  Country: None (occurrence: None)
  Receive Date: 20110420
  Receipt Date: 20110224
  Transmission Date: 20111010
  Serious: Yes (Other)
  Sender: FDA-Public Use
  Company Number: SPV1-2011-00036

PATIENT
  Age: 48 Year
  Sex: Female
  Weight: 67.1 kg

DRUGS (3)
  1. ESTRATEST [Concomitant]
  2. LIALDA [Suspect]
     Indication: COLITIS
  3. LEVOTHYROXINE SODIUM [Concomitant]

REACTIONS (8)
  - PAIN [None]
  - ASPARTATE AMINOTRANSFERASE INCREASED [None]
  - JAUNDICE [None]
  - PRURITUS [None]
  - INCORRECT DOSE ADMINISTERED [None]
  - URINE BILIRUBIN INCREASED [None]
  - URTICARIA [None]
  - ALANINE AMINOTRANSFERASE INCREASED [None]
